FAERS Safety Report 7708627-6 (Version None)
Quarter: 2011Q3

REPORT INFORMATION
  Report Type: 
  Country: None (occurrence: None)
  Receive Date: 20110819
  Receipt Date: 20110807
  Transmission Date: 20111222
  Serious: Yes (Death, Life-Threatening)
  Sender: FDA-Public Use
  Company Number: 2011S1000256

PATIENT
  Age: 1 Month
  Sex: Female

DRUGS (2)
  1. INOVENT (DELIVERY SYSTEM) [Suspect]
  2. INOMAX [Suspect]
     Indication: PERSISTENT FOETAL CIRCULATION
     Dosage: 20 PPM, CONT
     Dates: start: 20110806, end: 20110807

REACTIONS (4)
  - DEVICE FAILURE [None]
  - OXYGEN SATURATION DECREASED [None]
  - CARDIAC ARREST [None]
  - NO THERAPEUTIC RESPONSE [None]
